FAERS Safety Report 24743806 (Version 1)
Quarter: 2024Q4

REPORT INFORMATION
  Report Type: Spontaneous
  Country: US (occurrence: US)
  Receive Date: 20241217
  Receipt Date: 20241217
  Transmission Date: 20250114
  Serious: Yes (Other)
  Sender: FERRING
  Company Number: US-FERRINGPH-2024FE06903

PATIENT

DRUGS (1)
  1. ADSTILADRIN [Suspect]
     Active Substance: NADOFARAGENE FIRADENOVEC-VNCG
     Indication: Product used for unknown indication
     Dosage: 2 ROUNDS ADMINISTERED
     Route: 065

REACTIONS (1)
  - Neoplasm recurrence [Not Recovered/Not Resolved]
